FAERS Safety Report 24440745 (Version 2)
Quarter: 2024Q4

REPORT INFORMATION
  Report Type: Report from Study
  Country: CH (occurrence: CH)
  Receive Date: 20241016
  Receipt Date: 20241017
  Transmission Date: 20250115
  Serious: No
  Sender: ROCHE
  Company Number: CH-ROCHE-3057910

PATIENT
  Age: 11 Year
  Sex: Male
  Weight: 35.0 kg

DRUGS (5)
  1. EMICIZUMAB [Suspect]
     Active Substance: EMICIZUMAB
     Indication: Haemophilia A without inhibitors
     Dosage: 3 MG/KG
     Route: 058
     Dates: start: 20201203, end: 20201224
  2. EMICIZUMAB [Suspect]
     Active Substance: EMICIZUMAB
     Dosage: 1.5 MG/KG
     Route: 058
     Dates: start: 20201231
  3. ELOCTA [Concomitant]
     Active Substance: EFMOROCTOCOG ALFA
     Indication: Factor VIII deficiency
     Dosage: FREQUENCY TEXT:1/2 WEEK
     Route: 042
     Dates: start: 20200123, end: 20200630
  4. ELOCTA [Concomitant]
     Active Substance: EFMOROCTOCOG ALFA
     Dosage: FREQUENCY TEXT:1/2 WEEK
     Route: 042
     Dates: start: 20200207, end: 20201120
  5. DAFALGAN [Concomitant]
     Active Substance: ACETAMINOPHEN
     Indication: Tibia fracture
     Route: 048
     Dates: start: 20230214, end: 20230215

REACTIONS (1)
  - COVID-19 [Recovered/Resolved]

NARRATIVE: CASE EVENT DATE: 20220210
